FAERS Safety Report 21007231 (Version 1)
Quarter: 2022Q2

REPORT INFORMATION
  Report Type: Report from Study
  Country: US (occurrence: US)
  Receive Date: 20220625
  Receipt Date: 20220625
  Transmission Date: 20220721
  Serious: No
  Sender: FDA-Public Use
  Company Number: US-CELGENE-USA-20220108139

PATIENT
  Age: 72 Year
  Sex: Female
  Weight: 80.74 kg

DRUGS (4)
  1. POMALYST [Suspect]
     Active Substance: POMALIDOMIDE
     Indication: Plasma cell myeloma
     Dosage: 4 MILLIGRAM
     Dates: start: 201701
  2. POMALYST [Suspect]
     Active Substance: POMALIDOMIDE
     Dosage: 2 MILLIGRAM
     Dates: start: 201704
  3. POMALYST [Suspect]
     Active Substance: POMALIDOMIDE
     Dosage: 4 MILLIGRAM
     Dates: start: 201801
  4. POMALYST [Suspect]
     Active Substance: POMALIDOMIDE
     Dosage: 4 MILLIGRAM
     Dates: start: 202112

REACTIONS (6)
  - Peripheral swelling [Unknown]
  - Balance disorder [Unknown]
  - Decreased appetite [Unknown]
  - Taste disorder [Unknown]
  - Dehydration [Unknown]
  - Fatigue [Unknown]
